FAERS Safety Report 9861288 (Version 2)
Quarter: 2014Q1

REPORT INFORMATION
  Report Type: Spontaneous
  Country: JP (occurrence: JP)
  Receive Date: 20140202
  Receipt Date: 20140202
  Transmission Date: 20141002
  Serious: No
  Sender: FDA-Public Use
  Company Number: JP-ALLERGAN-1304220US

PATIENT
  Sex: Female

DRUGS (2)
  1. BOTOX [Suspect]
     Indication: FACIAL SPASM
     Dosage: 9 UNITS, SINGLE
     Route: 030
     Dates: start: 20121210, end: 20121210
  2. BOTOX [Suspect]
     Dosage: 9 UNITS, SINGLE
     Route: 030
     Dates: start: 20120318, end: 20120318

REACTIONS (1)
  - Skin induration [Not Recovered/Not Resolved]
